FAERS Safety Report 9334565 (Version 1)
Quarter: 2013Q2

REPORT INFORMATION
  Report Type: Spontaneous
  Country: US (occurrence: US)
  Receive Date: 20130606
  Receipt Date: 20130606
  Transmission Date: 20140414
  Serious: No
  Sender: FDA-Public Use
  Company Number: US-AMGEN-USASP2013023601

PATIENT
  Age: 82 Year
  Sex: Female
  Weight: 47.44 kg

DRUGS (6)
  1. PROLIA [Suspect]
     Indication: OSTEOPOROSIS POSTMENOPAUSAL
     Dosage: UNK UNK, Q6MO
     Route: 058
     Dates: start: 20110915
  2. TRENTAL [Concomitant]
     Indication: PERIPHERAL VASCULAR DISORDER
     Dosage: 400 UNK, TID
     Route: 048
  3. PRILOSEC                           /00661201/ [Concomitant]
     Indication: GASTROOESOPHAGEAL REFLUX DISEASE
     Dosage: 40 UNK, QD
     Route: 048
  4. TRAMADOL [Concomitant]
     Indication: PAIN
     Dosage: 325 UNK, AS NECESSARY
     Route: 048
  5. MOBIC [Concomitant]
     Indication: ARTHRITIS
     Dosage: 15 UNK, QD
     Route: 048
  6. MULTIVITAMIN                       /00097801/ [Concomitant]
     Dosage: UNK UNK, QD
     Route: 048

REACTIONS (3)
  - Tooth disorder [Unknown]
  - Loose tooth [Not Recovered/Not Resolved]
  - Dental caries [Not Recovered/Not Resolved]
